FAERS Safety Report 5689904-X (Version None)
Quarter: 2008Q1

REPORT INFORMATION
  Report Type: 
  Country: None (occurrence: None)
  Receive Date: 20080331
  Receipt Date: 20080331
  Transmission Date: 20080703
  Serious: Yes (Other)
  Sender: FDA-Public Use
  Company Number: None

PATIENT
  Age: 55 Year
  Sex: Female
  Weight: 54.4316 kg

DRUGS (1)
  1. SINGULAIR [Suspect]
     Indication: PERFUME SENSITIVITY
     Dosage: DON'T REMEMBER ONCE A DAY -?- PO BETWEEN 2 - 3 MONTHS
     Route: 048
     Dates: start: 20061101, end: 20070227

REACTIONS (3)
  - ABNORMAL BEHAVIOUR [None]
  - MENTAL DISORDER [None]
  - UNEMPLOYMENT [None]
